FAERS Safety Report 7290003-4 (Version None)
Quarter: 2011Q1

REPORT INFORMATION
  Report Type: 
  Country: None (occurrence: None)
  Receive Date: 20110214
  Receipt Date: 20110207
  Transmission Date: 20110831
  Serious: Yes (Other)
  Sender: FDA-Public Use
  Company Number: VE-AMGEN-VENSP2011007546

PATIENT
  Age: 38 Year
  Sex: Female

DRUGS (8)
  1. NEUPOGEN [Suspect]
     Indication: NON-HODGKIN'S LYMPHOMA
     Dosage: 300 A?G, UNK
     Route: 042
     Dates: start: 20101105
  2. CITOSINA ARABINOSA [Concomitant]
  3. MABTHERA [Concomitant]
     Indication: NON-HODGKIN'S LYMPHOMA
     Dosage: 600 MG/M2, UNK
     Route: 042
     Dates: start: 20101105
  4. DEXAMETHASONE [Concomitant]
  5. RECORMON                           /00928301/ [Concomitant]
     Indication: NON-HODGKIN'S LYMPHOMA
     Dosage: 30000 UNK, UNK
     Route: 042
     Dates: start: 20101105
  6. ONDANSERTRON HCL [Concomitant]
  7. EMEND                              /01627301/ [Concomitant]
  8. PALONOSETRON [Concomitant]

REACTIONS (2)
  - CONSTIPATION [None]
  - MUSCLE SPASMS [None]
